FAERS Safety Report 7336994-4 (Version None)
Quarter: 2011Q1

REPORT INFORMATION
  Report Type: 
  Country: None (occurrence: None)
  Receive Date: 20110224
  Receipt Date: 20110210
  Transmission Date: 20110831
  Serious: No
  Sender: FDA-Public Use
  Company Number: 027340

PATIENT
  Sex: Female

DRUGS (5)
  1. FOLIC ACID W/VITAMINS NOS [Concomitant]
  2. KEPPRA [Suspect]
     Indication: EPILEPSY
     Dosage: (2000 MG, 500 MG, 2 TABLETS ORAL)
     Route: 048
  3. ZOLOFT [Concomitant]
  4. KEPPRA [Suspect]
     Indication: EPILEPSY
     Dosage: (2000 MG, 500 MG, 2 TABLETS ORAL)
     Route: 048
  5. AMBIEN [Concomitant]

REACTIONS (6)
  - HEART RATE INCREASED [None]
  - PREGNANCY [None]
  - WEIGHT DECREASED [None]
  - MEDICATION ERROR [None]
  - BODY TEMPERATURE DECREASED [None]
  - DRUG EXPOSURE DURING PREGNANCY [None]
